FAERS Safety Report 23806519 (Version 1)
Quarter: 2024Q2

REPORT INFORMATION
  Report Type: Spontaneous
  Country: US (occurrence: US)
  Receive Date: 20240502
  Receipt Date: 20240502
  Transmission Date: 20240716
  Serious: Yes (Hospitalization, Other)
  Sender: FDA-Public Use
  Company Number: US-Accord-421893

PATIENT
  Age: 65 Year
  Sex: Male

DRUGS (4)
  1. CARBOPLATIN [Suspect]
     Active Substance: CARBOPLATIN
     Indication: Squamous cell carcinoma of the tongue
     Route: 042
  2. PACLITAXEL [Suspect]
     Active Substance: PACLITAXEL
     Indication: Squamous cell carcinoma of the tongue
  3. CARBOPLATIN [Suspect]
     Active Substance: CARBOPLATIN
     Indication: Metastases to lymph nodes
     Route: 042
  4. PACLITAXEL [Suspect]
     Active Substance: PACLITAXEL
     Indication: Metastases to lymph nodes

REACTIONS (2)
  - Optic neuropathy [Not Recovered/Not Resolved]
  - Off label use [Unknown]
